FAERS Safety Report 10061010 (Version 2)
Quarter: 2014Q2

REPORT INFORMATION
  Report Type: Spontaneous
  Country: CH (occurrence: CH)
  Receive Date: 20140405
  Receipt Date: 20140411
  Transmission Date: 20141212
  Serious: Yes (Death, Other)
  Sender: FDA-Public Use
  Company Number: CH-ROCHE-1378319

PATIENT
  Age: 22 Year
  Sex: Female

DRUGS (3)
  1. AVASTIN [Suspect]
     Indication: COLON CANCER
     Route: 042
  2. MITOMYCIN [Concomitant]
     Indication: COLON CANCER
  3. CISPLATIN [Concomitant]
     Indication: COLON CANCER

REACTIONS (2)
  - Disease progression [Fatal]
  - Renal failure chronic [Unknown]
